FAERS Safety Report 6259672-1 (Version None)
Quarter: 2009Q3

REPORT INFORMATION
  Report Type: 
  Country: None (occurrence: None)
  Receive Date: 20090706
  Receipt Date: 20090706
  Transmission Date: 20100115
  Serious: No
  Sender: FDA-Public Use
  Company Number: None

PATIENT
  Age: 25 Year
  Sex: Male
  Weight: 74.8435 kg

DRUGS (4)
  1. ZICAM COLD RELIEF GEL SWABS ZICAM [Suspect]
     Indication: NASAL CONGESTION
     Dosage: ONE SWAB AS DIRECTED NASAL
     Route: 045
     Dates: start: 20080101, end: 20090525
  2. ZICAM COLD RELIEF GEL SWABS ZICAM [Suspect]
     Indication: NASOPHARYNGITIS
     Dosage: ONE SWAB AS DIRECTED NASAL
     Route: 045
     Dates: start: 20080101, end: 20090525
  3. ZICAM COLD RELIEF NASAL SPRAY ZICAM [Suspect]
     Indication: NASAL CONGESTION
     Dosage: ONE TO TWO SPRAYS AS DIRECTED NASAL
     Route: 045
     Dates: start: 20080101, end: 20090525
  4. ZICAM COLD RELIEF NASAL SPRAY ZICAM [Suspect]
     Indication: NASOPHARYNGITIS
     Dosage: ONE TO TWO SPRAYS AS DIRECTED NASAL
     Route: 045
     Dates: start: 20080101, end: 20090525

REACTIONS (1)
  - ANOSMIA [None]
